FAERS Safety Report 17005181 (Version 14)
Quarter: 2021Q2

REPORT INFORMATION
  Report Type: Report from Study
  Country: AU (occurrence: AU)
  Receive Date: 20191107
  Receipt Date: 20210622
  Transmission Date: 20210716
  Serious: Yes (Death, Life-Threatening, Hospitalization)
  Sender: FDA-Public Use
  Company Number: NVSC2019AU003455

PATIENT
  Age: 19 Year
  Sex: Male
  Weight: 82 kg

DRUGS (102)
  1. SULFAMETHOXAZOLE AND TRIMETHOPRIM [Concomitant]
     Active Substance: SULFAMETHOXAZOLE\TRIMETHOPRIM
     Indication: PYREXIA
     Dosage: UNK
     Route: 065
     Dates: start: 20190902
  2. PANTOPRAZOLE [Concomitant]
     Active Substance: PANTOPRAZOLE
     Indication: PROPHYLAXIS
     Dosage: UNK
     Route: 065
     Dates: start: 20190831, end: 20190925
  3. ENDONE [Concomitant]
     Active Substance: OXYCODONE HYDROCHLORIDE
     Indication: PYREXIA
     Dosage: UNK
     Route: 065
     Dates: start: 20190829
  4. GENTAMICIN. [Concomitant]
     Active Substance: GENTAMICIN
     Indication: FEBRILE NEUTROPENIA
     Dosage: UNK
     Route: 065
     Dates: start: 20190926, end: 20190926
  5. ACETAZOLAMIDE. [Concomitant]
     Active Substance: ACETAZOLAMIDE
     Indication: GENERALISED OEDEMA
     Dosage: UNK
     Route: 065
     Dates: start: 20191001, end: 20191005
  6. ADDAVEN [Concomitant]
     Active Substance: ELECTROLYTES NOS\MINERALS
     Indication: NUTRITIONAL SUPPLEMENTATION
     Dosage: UNK
     Route: 065
     Dates: start: 20190912, end: 20191008
  7. FUROSEMIDE. [Concomitant]
     Active Substance: FUROSEMIDE
     Dosage: UNK
     Route: 065
     Dates: start: 20190926, end: 20190926
  8. FUROSEMIDE. [Concomitant]
     Active Substance: FUROSEMIDE
     Dosage: UNK
     Route: 065
     Dates: start: 20190930, end: 20191001
  9. FUROSEMIDE. [Concomitant]
     Active Substance: FUROSEMIDE
     Dosage: UNK
     Route: 065
     Dates: start: 20191001, end: 20191006
  10. LEVETIRACETAM. [Concomitant]
     Active Substance: LEVETIRACETAM
     Indication: PROPHYLAXIS
     Dosage: UNK
     Route: 065
     Dates: start: 20191004, end: 20191008
  11. MORPHINE [Concomitant]
     Active Substance: MORPHINE
     Indication: PAIN
     Dosage: UNK
     Route: 065
     Dates: start: 20190904, end: 20191006
  12. PARACETAMOL [Concomitant]
     Active Substance: ACETAMINOPHEN
     Indication: PAIN
     Dosage: UNK
     Route: 065
     Dates: start: 20190830, end: 20191009
  13. RASBURICASE [Concomitant]
     Active Substance: RASBURICASE
     Indication: PROPHYLAXIS
     Dosage: UNK
     Route: 065
     Dates: start: 20190904, end: 20191004
  14. VANCOMYCIN [Concomitant]
     Active Substance: VANCOMYCIN
     Indication: PYREXIA
     Dosage: UNK
     Route: 065
     Dates: start: 20190927, end: 20190927
  15. VENETOCLAX. [Concomitant]
     Active Substance: VENETOCLAX
     Dosage: UNK
     Route: 065
     Dates: start: 20190926, end: 20190926
  16. TISAGENLECLEUCEL. [Suspect]
     Active Substance: TISAGENLECLEUCEL
     Indication: NON-HODGKIN^S LYMPHOMA
     Dosage: 0.3491_10E8 CELLS
     Route: 041
     Dates: start: 20191004
  17. ONDANSETRON [Concomitant]
     Active Substance: ONDANSETRON
     Indication: NAUSEA
     Dosage: UNK
     Route: 065
     Dates: start: 20190818
  18. MEROPENEM. [Concomitant]
     Active Substance: MEROPENEM
     Indication: PYREXIA
     Dosage: UNK
     Route: 065
     Dates: start: 20190927, end: 20191008
  19. VORICONAZOLE. [Concomitant]
     Active Substance: VORICONAZOLE
     Dosage: UNK
     Route: 065
     Dates: start: 20191008, end: 20191009
  20. DROPERIDOL. [Concomitant]
     Active Substance: DROPERIDOL
     Indication: NAUSEA
     Dosage: UNK
     Route: 065
     Dates: start: 20190909, end: 20191006
  21. FILGRASTIM [Concomitant]
     Active Substance: FILGRASTIM
     Indication: FEBRILE NEUTROPENIA
     Dosage: UNK
     Route: 065
     Dates: start: 20190908, end: 20190918
  22. FLUCONAZOLE. [Concomitant]
     Active Substance: FLUCONAZOLE
     Dosage: UNK
     Route: 065
     Dates: start: 20190927, end: 20191004
  23. LORATADINE. [Concomitant]
     Active Substance: LORATADINE
     Indication: PREMEDICATION
     Dosage: UNK
     Route: 065
     Dates: start: 20191004, end: 20191004
  24. LORATADINE. [Concomitant]
     Active Substance: LORATADINE
     Indication: ANTIALLERGIC THERAPY
     Dosage: UNK
     Route: 065
     Dates: start: 20191005, end: 20191008
  25. MAGNESIUM ASPARTATE [Concomitant]
     Active Substance: MAGNESIUM ASPARTATE
     Indication: PROPHYLAXIS
     Dosage: UNK
     Route: 065
     Dates: start: 20190912, end: 20190925
  26. MAGNESIUM ASPARTATE [Concomitant]
     Active Substance: MAGNESIUM ASPARTATE
     Dosage: UNK
     Route: 065
     Dates: start: 20191001, end: 20191009
  27. VITALIPID N [Concomitant]
     Active Substance: ERGOCALCIFEROL\PHYTONADIONE\TOCOPHEROL\VITAMIN A PALMITATE
     Indication: PROPHYLAXIS
     Dosage: UNK
     Route: 065
     Dates: start: 20190912, end: 20191011
  28. MIDAZOLAM. [Concomitant]
     Active Substance: MIDAZOLAM
     Indication: SEDATION
     Dosage: UNK
     Route: 065
     Dates: start: 20191002, end: 20191002
  29. CYTARABINE. [Suspect]
     Active Substance: CYTARABINE
     Indication: NON-HODGKIN^S LYMPHOMA
     Dosage: 7600 MG, BID
     Route: 042
     Dates: start: 20190906
  30. BACTRIM [Concomitant]
     Active Substance: SULFAMETHOXAZOLE\TRIMETHOPRIM
     Indication: PROPHYLAXIS
     Dosage: UNK
     Route: 065
     Dates: start: 20190814
  31. CYCLIZINE [Concomitant]
     Active Substance: CYCLIZINE
     Indication: NAUSEA
     Dosage: UNK
     Route: 065
     Dates: start: 20190829
  32. METOCLOPRAMIDE. [Concomitant]
     Active Substance: METOCLOPRAMIDE
     Indication: PROPHYLAXIS
     Dosage: UNK
     Route: 065
     Dates: start: 20190830, end: 20190922
  33. ENDONE [Concomitant]
     Active Substance: OXYCODONE HYDROCHLORIDE
     Indication: PAIN
  34. VORICONAZOLE. [Concomitant]
     Active Substance: VORICONAZOLE
     Indication: ANTIFUNGAL PROPHYLAXIS
     Dosage: UNK
     Route: 065
     Dates: start: 20191008, end: 20191008
  35. DOCUSATE [Concomitant]
     Active Substance: DOCUSATE
     Dosage: UNK
     Route: 065
     Dates: start: 20191005, end: 20191009
  36. FLUCONAZOLE. [Concomitant]
     Active Substance: FLUCONAZOLE
     Indication: ANTIFUNGAL PROPHYLAXIS
     Dosage: UNK
     Route: 065
     Dates: start: 20190927, end: 20190927
  37. SALBUTAMOL [Concomitant]
     Active Substance: ALBUTEROL
     Indication: PRODUCT USED FOR UNKNOWN INDICATION
     Dosage: UNK
     Route: 065
     Dates: start: 20191009, end: 20191009
  38. PHOSPHORUS [Concomitant]
     Active Substance: PHOSPHORUS
     Indication: PROPHYLAXIS
     Dosage: UNK
     Route: 065
     Dates: start: 20190913, end: 20190916
  39. CALCIUM CHLORIDE. [Concomitant]
     Active Substance: CALCIUM CHLORIDE
     Indication: PROPHYLAXIS
     Dosage: UNK
     Route: 065
     Dates: start: 20191008, end: 20191008
  40. RITUXIMAB. [Suspect]
     Active Substance: RITUXIMAB
     Indication: NON-HODGKIN^S LYMPHOMA
     Dosage: 700 MG, ONCE/SINGLE
     Route: 042
     Dates: start: 20190815
  41. GEMCITABINE. [Suspect]
     Active Substance: GEMCITABINE
     Indication: NON-HODGKIN^S LYMPHOMA
     Dosage: 1900 MG, ONCE/SINGLE
     Route: 042
     Dates: start: 20190815
  42. ONDANSETRON [Concomitant]
     Active Substance: ONDANSETRON
     Indication: PROPHYLAXIS OF NAUSEA AND VOMITING
     Dosage: UNK
     Route: 065
     Dates: start: 20190830, end: 20191008
  43. TAZOCIN [Concomitant]
     Active Substance: PIPERACILLIN SODIUM\TAZOBACTAM SODIUM
     Indication: SEPSIS
  44. GENTAMICIN. [Concomitant]
     Active Substance: GENTAMICIN
     Indication: PYREXIA
     Dosage: UNK
     Route: 065
     Dates: start: 20190914, end: 20190914
  45. PIPERACILLIN/TAZOBACTAM [Concomitant]
     Active Substance: PIPERACILLIN SODIUM\TAZOBACTAM SODIUM
     Indication: PYREXIA
     Dosage: UNK
     Route: 065
     Dates: start: 20190830, end: 20191008
  46. KETAMINE [Concomitant]
     Active Substance: KETAMINE
     Indication: SEDATION
     Dosage: UNK
     Route: 065
     Dates: start: 20010921, end: 20191009
  47. PARACETAMOL [Concomitant]
     Active Substance: ACETAMINOPHEN
     Indication: PREMEDICATION
     Dosage: UNK
     Route: 065
     Dates: start: 20191004, end: 20191004
  48. PARACETAMOL [Concomitant]
     Active Substance: ACETAMINOPHEN
     Dosage: UNK
     Route: 065
     Dates: start: 20191008
  49. POTASSIUM CHLORIDE. [Concomitant]
     Active Substance: POTASSIUM CHLORIDE
     Indication: PROPHYLAXIS
     Dosage: UNK
     Route: 065
     Dates: start: 20190909, end: 20190927
  50. POTASSIUM PHOSPHATE [Concomitant]
     Active Substance: POTASSIUM PHOSPHATE
     Indication: PROPHYLAXIS
     Dosage: UNK
     Route: 065
     Dates: start: 20190913, end: 20191011
  51. SODIUM PHOSPHATE [Concomitant]
     Active Substance: SODIUM PHOSPHATE
     Indication: PROPHYLAXIS
     Dosage: UNK
     Route: 065
     Dates: start: 20191006, end: 20191006
  52. TEMAZEPAM. [Concomitant]
     Active Substance: TEMAZEPAM
     Indication: INSOMNIA
     Dosage: UNK
     Route: 065
     Dates: start: 20190814, end: 20191008
  53. ROCURONIUM BROMIDE. [Concomitant]
     Active Substance: ROCURONIUM BROMIDE
     Indication: ENDOTRACHEAL INTUBATION
     Dosage: UNK
     Route: 065
     Dates: start: 20191008, end: 20191008
  54. FENTANYL. [Concomitant]
     Active Substance: FENTANYL
     Indication: SEDATION
     Dosage: UNK
     Route: 065
     Dates: start: 20191008, end: 20191008
  55. DEXAMETHASONE. [Suspect]
     Active Substance: DEXAMETHASONE
     Indication: NON-HODGKIN^S LYMPHOMA
     Dosage: 160 MG, ONCE/SINGLE
     Route: 048
     Dates: start: 20190815
  56. TOCILIZUMAB. [Suspect]
     Active Substance: TOCILIZUMAB
     Indication: NON-HODGKIN^S LYMPHOMA
     Dosage: 8 MG/KG
     Route: 042
     Dates: start: 20191005
  57. VALACICLOVIR [Concomitant]
     Active Substance: VALACYCLOVIR HYDROCHLORIDE
     Indication: ANTIVIRAL PROPHYLAXIS
     Dosage: UNK
     Route: 065
     Dates: start: 20190301, end: 20190925
  58. ACICLOVIR [Concomitant]
     Active Substance: ACYCLOVIR
     Indication: PROPHYLAXIS
     Dosage: UNK
     Route: 065
     Dates: start: 20191008
  59. ADDAVEN [Concomitant]
     Active Substance: ELECTROLYTES NOS\MINERALS
     Dosage: UNK
     Route: 065
     Dates: start: 20190920, end: 20190921
  60. KETAMINE [Concomitant]
     Active Substance: KETAMINE
     Indication: PAIN
     Dosage: UNK
     Route: 065
     Dates: start: 20010911, end: 20190921
  61. LORAZEPAM. [Concomitant]
     Active Substance: LORAZEPAM
     Indication: ANXIETY
     Dosage: UNK
     Route: 065
     Dates: start: 20190830, end: 20191007
  62. LORAZEPAM. [Concomitant]
     Active Substance: LORAZEPAM
     Dosage: UNK
     Route: 065
     Dates: start: 20191007, end: 20191009
  63. METRONIDAZOLE. [Concomitant]
     Active Substance: METRONIDAZOLE
     Dosage: UNK
     Route: 065
     Dates: start: 20190919, end: 20190924
  64. POSACONAZOLE [Concomitant]
     Active Substance: POSACONAZOLE
     Indication: ANTIFUNGAL PROPHYLAXIS
     Dosage: UNK
     Route: 065
     Dates: start: 20191005, end: 20191007
  65. SOLUVIT N [Concomitant]
     Active Substance: VITAMINS
     Indication: PARENTERAL NUTRITION
     Dosage: UNK
     Route: 065
     Dates: start: 20190912, end: 20191011
  66. MIDAZOLAM. [Concomitant]
     Active Substance: MIDAZOLAM
     Indication: SEDATION
     Dosage: UNK
     Route: 065
     Dates: start: 20191008, end: 20191008
  67. CISPLATIN. [Suspect]
     Active Substance: CISPLATIN
     Indication: NON-HODGKIN^S LYMPHOMA
     Dosage: 143 MG, ONCE/SINGLE
     Route: 042
     Dates: start: 20190816
  68. PANTOPRAZOLE [Concomitant]
     Active Substance: PANTOPRAZOLE
     Dosage: UNK
     Route: 065
     Dates: start: 20190925
  69. TAZOCIN [Concomitant]
     Active Substance: PIPERACILLIN SODIUM\TAZOBACTAM SODIUM
     Indication: FEBRILE NEUTROPENIA
     Dosage: UNK
     Route: 065
     Dates: start: 20190829, end: 20190927
  70. ACICLOVIR [Concomitant]
     Active Substance: ACYCLOVIR
     Indication: ANTIVIRAL PROPHYLAXIS
     Dosage: UNK
     Route: 065
     Dates: start: 20190925, end: 20191008
  71. DOCUSATE [Concomitant]
     Active Substance: DOCUSATE
     Indication: CONSTIPATION
     Dosage: UNK
     Route: 065
     Dates: start: 20190901, end: 20190925
  72. DROPERIDOL. [Concomitant]
     Active Substance: DROPERIDOL
     Dosage: UNK
     Route: 065
     Dates: start: 20191006, end: 20191009
  73. FUROSEMIDE. [Concomitant]
     Active Substance: FUROSEMIDE
     Dosage: UNK
     Route: 065
     Dates: start: 20190928, end: 20190929
  74. KETAMINE [Concomitant]
     Active Substance: KETAMINE
     Dosage: UNK
     Route: 065
     Dates: start: 20191002, end: 20191002
  75. KETAMINE [Concomitant]
     Active Substance: KETAMINE
     Dosage: UNK
     Route: 065
     Dates: start: 20191008, end: 20191008
  76. POSACONAZOLE [Concomitant]
     Active Substance: POSACONAZOLE
     Dosage: UNK
     Route: 065
     Dates: start: 20191008, end: 20191009
  77. POTASSIUM CHLORIDE. [Concomitant]
     Active Substance: POTASSIUM CHLORIDE
     Dosage: UNK
     Route: 065
     Dates: start: 20190913, end: 20191011
  78. TAPENTADOL [Concomitant]
     Active Substance: TAPENTADOL
     Indication: PAIN
     Dosage: UNK
     Route: 065
     Dates: start: 20190902, end: 20191009
  79. XYLOCAINE VISCOUS [Concomitant]
     Active Substance: LIDOCAINE HYDROCHLORIDE
     Indication: GASTROINTESTINAL TUBE INSERTION
     Dosage: UNK
     Route: 065
     Dates: start: 20190924, end: 20190924
  80. FENTANYL. [Concomitant]
     Active Substance: FENTANYL
     Indication: ENDOTRACHEAL INTUBATION
     Dosage: UNK
     Route: 065
     Dates: start: 20191002, end: 20191002
  81. ALBUMIN [Concomitant]
     Active Substance: ALBUMIN HUMAN
     Indication: GENERALISED OEDEMA
     Dosage: UNK
     Route: 065
     Dates: start: 20190926, end: 20190926
  82. FLUDARABINE PHOSPHATE. [Suspect]
     Active Substance: FLUDARABINE PHOSPHATE
     Indication: CHEMOTHERAPY
     Dosage: UNK
     Route: 065
     Dates: start: 20190927, end: 20190929
  83. DEXAMETHASONE. [Concomitant]
     Active Substance: DEXAMETHASONE
     Indication: PREMEDICATION
     Dosage: UNK
     Route: 065
     Dates: start: 20190927, end: 20190930
  84. ALLOPURINOL. [Concomitant]
     Active Substance: ALLOPURINOL
     Indication: PROPHYLAXIS
     Dosage: UNK
     Route: 065
     Dates: start: 20190814
  85. OEDEMASE [Concomitant]
     Active Substance: FUROSEMIDE
     Indication: GENERALISED OEDEMA
     Dosage: UNK
     Route: 065
     Dates: start: 20190926, end: 20190927
  86. MELATONIN [Concomitant]
     Active Substance: MELATONIN
     Indication: INSOMNIA
     Dosage: UNK
     Route: 065
     Dates: start: 20190911, end: 20190925
  87. PHYTOMENADIONE [Concomitant]
     Active Substance: PHYTONADIONE
     Indication: SUPPLEMENTATION THERAPY
     Dosage: UNK
     Route: 065
     Dates: start: 20190928, end: 20191005
  88. SMOFKABIVEN [Concomitant]
     Active Substance: AMINO ACIDS\DEXTROSE\ELECTROLYTES NOS\SOYBEAN OIL
     Indication: PARENTERAL NUTRITION
     Dosage: UNK
     Route: 065
     Dates: start: 20190912, end: 20191003
  89. VENETOCLAX. [Concomitant]
     Active Substance: VENETOCLAX
     Indication: NON-HODGKIN^S LYMPHOMA
     Dosage: UNK
     Route: 065
     Dates: start: 20190924, end: 20190924
  90. VENETOCLAX. [Concomitant]
     Active Substance: VENETOCLAX
     Dosage: UNK
     Route: 065
     Dates: start: 20190927, end: 20190930
  91. PHOSPHORUS [Concomitant]
     Active Substance: PHOSPHORUS
     Dosage: UNK
     Route: 065
     Dates: start: 20190914, end: 20190914
  92. CYCLOPHOSPHAMIDE. [Suspect]
     Active Substance: CYCLOPHOSPHAMIDE
     Indication: CHEMOTHERAPY
     Dosage: UNK
     Route: 065
     Dates: start: 20190927, end: 20190929
  93. DEXAMETHASONE. [Concomitant]
     Active Substance: DEXAMETHASONE
     Indication: INTESTINAL OBSTRUCTION
     Dosage: UNK
     Route: 065
     Dates: start: 20190922, end: 20190925
  94. VORICONAZOLE. [Concomitant]
     Active Substance: VORICONAZOLE
     Dosage: UNK
     Route: 065
     Dates: start: 20191009
  95. FUROSEMIDE. [Concomitant]
     Active Substance: FUROSEMIDE
     Indication: GENERALISED OEDEMA
     Dosage: UNK
     Route: 065
     Dates: start: 20190904, end: 20190927
  96. LEVETIRACETAM. [Concomitant]
     Active Substance: LEVETIRACETAM
     Dosage: UNK
     Route: 065
     Dates: start: 20191008
  97. MACROGOL [Concomitant]
     Active Substance: POLYETHYLENE GLYCOLS
     Indication: CONSTIPATION
     Dosage: UNK
     Route: 065
     Dates: start: 20190926, end: 20191005
  98. METRONIDAZOLE. [Concomitant]
     Active Substance: METRONIDAZOLE
     Indication: PYREXIA
     Dosage: UNK
     Route: 065
     Dates: start: 20190917, end: 20191008
  99. POTASSIUM DIHYDROGEN PHOSPHATE [Concomitant]
     Active Substance: POTASSIUM PHOSPHATE, MONOBASIC
     Indication: HYPOPHOSPHATAEMIA
     Dosage: UNK
     Route: 065
     Dates: start: 20190914, end: 20190916
  100. VITALIPID N [Concomitant]
     Active Substance: ERGOCALCIFEROL\PHYTONADIONE\TOCOPHEROL\VITAMIN A PALMITATE
     Indication: PARENTERAL NUTRITION
  101. VENETOCLAX. [Concomitant]
     Active Substance: VENETOCLAX
     Dosage: UNK
     Route: 065
     Dates: start: 20190925, end: 20190925
  102. MAGNESIUM SULFATE. [Concomitant]
     Active Substance: MAGNESIUM SULFATE
     Indication: PROPHYLAXIS
     Dosage: UNK
     Route: 065
     Dates: start: 20190830, end: 20191011

REACTIONS (3)
  - Metabolic acidosis [Not Recovered/Not Resolved]
  - Cytokine release syndrome [Not Recovered/Not Resolved]
  - Enterococcal sepsis [Fatal]

NARRATIVE: CASE EVENT DATE: 20191005
